FAERS Safety Report 12121078 (Version 1)
Quarter: 2016Q1

REPORT INFORMATION
  Report Type: Spontaneous
  Country: US (occurrence: US)
  Receive Date: 20160226
  Receipt Date: 20160226
  Transmission Date: 20160526
  Serious: No
  Sender: FDA-Public Use
  Company Number: US-ALLERGAN-1114035US

PATIENT
  Sex: Female

DRUGS (4)
  1. REFRESH PLUS [Concomitant]
     Active Substance: CARBOXYMETHYLCELLULOSE SODIUM
     Dosage: UNK
     Route: 047
  2. REFRESH OPTIVE SENSITIVE [Suspect]
     Active Substance: CARBOXYMETHYLCELLULOSE SODIUM\GLYCERIN
     Indication: ULCERATIVE KERATITIS
     Dosage: 2 GTT, Q1HR
     Route: 047
     Dates: start: 20111023
  3. ZYMAXID [Concomitant]
     Active Substance: GATIFLOXACIN
     Indication: ULCERATIVE KERATITIS
  4. ERYTHROMYCIN OPHTHALMIC OINTMENT [Concomitant]

REACTIONS (2)
  - Eye irritation [Not Recovered/Not Resolved]
  - Eye pain [Not Recovered/Not Resolved]

NARRATIVE: CASE EVENT DATE: 20111023
